FAERS Safety Report 6847828-6 (Version None)
Quarter: 2010Q3

REPORT INFORMATION
  Report Type: 
  Country: None (occurrence: None)
  Receive Date: 20100716
  Receipt Date: 20100706
  Transmission Date: 20110219
  Serious: Yes (Other)
  Sender: FDA-Public Use
  Company Number: US-BAYER-200943511NA

PATIENT
  Age: 36 Year
  Sex: Male

DRUGS (12)
  1. AVELOX [Suspect]
     Indication: INFECTION
     Route: 048
     Dates: start: 20070901
  2. CIPRO [Suspect]
     Indication: INFECTION
     Dosage: TOTAL DAILY DOSE: 500 MG  UNIT DOSE: 250 MG
     Route: 048
     Dates: start: 20080331, end: 20080401
  3. HYDROCORTISONE [Concomitant]
     Dosage: 30MG
     Route: 061
     Dates: start: 20070921
  4. PREDNISONE [Concomitant]
     Dosage: UNIT DOSE: 50 MG
     Route: 048
     Dates: start: 20070926, end: 20070930
  5. PROAIR HFA [Concomitant]
     Indication: WHEEZING
     Dosage: 8.5 MG/2 PUFFS Q4 - 6HRS
     Route: 055
     Dates: start: 20070926
  6. CLARITHROMYCIN [Concomitant]
     Dosage: TOTAL DAILY DOSE: 1000 MG  UNIT DOSE: 500 MG
     Route: 048
     Dates: start: 20070926, end: 20071004
  7. AMOXICILLIN AND CLAVULANATE POTASSIUM [Concomitant]
     Dosage: TOTAL DAILY DOSE: 1700 MG  UNIT DOSE: 875 MG
     Route: 048
     Dates: start: 20070928, end: 20081001
  8. PROMETHAZINE W/ CODEINE [Concomitant]
     Dosage: 1-2 TSPQ HS
     Route: 048
     Dates: start: 20070928
  9. ALBUTEROL [Concomitant]
     Dosage: 4-6 HRS
     Route: 055
     Dates: start: 20070928
  10. IBUPROFEN [Concomitant]
     Dates: start: 20080331, end: 20080401
  11. DOXYCYCLINE HYCLATE [Concomitant]
     Dosage: TOTAL DAILY DOSE: 200 MG  UNIT DOSE: 100 MG
     Route: 048
     Dates: start: 20080331, end: 20080401
  12. OXYCODONE HCL AND ACETAMINOPHEN [Concomitant]
     Dosage: 5MG-325 MG
     Route: 048
     Dates: start: 20080331

REACTIONS (2)
  - TENDON RUPTURE [None]
  - TENDONITIS [None]
